FAERS Safety Report 16053126 (Version 4)
Quarter: 2019Q4

REPORT INFORMATION
  Report Type: Spontaneous
  Country: JP (occurrence: JP)
  Receive Date: 20190308
  Receipt Date: 20191115
  Transmission Date: 20200122
  Serious: Yes (Death, Life-Threatening, Other)
  Sender: FDA-Public Use
  Company Number: JP-009507513-1902JPN001187J

PATIENT
  Age: 64 Year
  Sex: Male
  Weight: 52 kg

DRUGS (11)
  1. KEYTRUDA [Suspect]
     Active Substance: PEMBROLIZUMAB
     Indication: NON-SMALL CELL LUNG CANCER
     Dosage: 200 MILLIGRAM, Q3W
     Route: 041
     Dates: start: 20190207, end: 20190207
  2. CARBAZOCHROME SULFONATE NA [Concomitant]
     Indication: HAEMOPTYSIS
     Dosage: 30 MILLIGRAM, TID
     Route: 048
     Dates: start: 20190122, end: 20190220
  3. TAZOBACTAM SODIUM_PIPERACILLIN SODIUM [Concomitant]
     Indication: C-REACTIVE PROTEIN INCREASED
     Dosage: UNK
     Route: 065
  4. GENINAX [Concomitant]
     Active Substance: GARENOXACIN MESYLATE
     Indication: PNEUMONIA
     Dosage: 400 MILLIGRAM
     Route: 048
     Dates: start: 20190206, end: 20190211
  5. TAKECAB [Concomitant]
     Active Substance: VONOPRAZAN FUMURATE
     Indication: PROPHYLAXIS AGAINST GASTROINTESTINAL ULCER
     Dosage: 10 MILLIGRAM
     Route: 048
     Dates: start: 20190131, end: 20190221
  6. ELCITONIN [Concomitant]
     Active Substance: ELCATONIN
     Indication: HYPERCALCAEMIA
     Dosage: UNK
     Route: 065
  7. METASTRON [Concomitant]
     Active Substance: STRONTIUM CHLORIDE SR-89
     Indication: PAIN
     Dosage: UNK
     Route: 065
     Dates: start: 20190129
  8. NOVAMIN [Concomitant]
     Indication: PROPHYLAXIS OF NAUSEA AND VOMITING
     Dosage: 5 MILLIGRAM, TID
     Route: 048
     Dates: start: 20190128, end: 20190220
  9. OXYCODONE [Concomitant]
     Active Substance: OXYCODONE
     Indication: CANCER PAIN
     Dosage: 20 MILLIGRAM, BID
     Route: 048
     Dates: start: 20190128, end: 20190221
  10. ZOLEDRONIC ACID HYDRATE [Concomitant]
     Active Substance: ZOLEDRONIC ACID
     Indication: HYPERCALCAEMIA
     Dosage: UNK
     Route: 065
  11. LOXOPROFEN [Concomitant]
     Active Substance: LOXOPROFEN
     Indication: CANCER PAIN
     Dosage: 60 MILLIGRAM, TID
     Route: 048
     Dates: start: 20190128, end: 20190221

REACTIONS (4)
  - Aspiration [Fatal]
  - Respiratory failure [Fatal]
  - Interstitial lung disease [Not Recovered/Not Resolved]
  - Pneumonia [Fatal]

NARRATIVE: CASE EVENT DATE: 20190210
